FAERS Safety Report 21441045 (Version 1)
Quarter: 2022Q4

REPORT INFORMATION
  Report Type: Spontaneous
  Country: US (occurrence: None)
  Receive Date: 20221010
  Receipt Date: 20221010
  Transmission Date: 20230113
  Serious: Yes (Life-Threatening)
  Sender: FDA-Public Use
  Company Number: None

PATIENT
  Age: 77 Year
  Sex: Male
  Weight: 75.3 kg

DRUGS (1)
  1. ALBURX [Suspect]
     Active Substance: ALBUMIN HUMAN
     Indication: Hypovolaemia
     Dosage: OTHER FREQUENCY : ONCE?
     Route: 040
     Dates: start: 20221007, end: 20221007

REACTIONS (4)
  - Loss of consciousness [None]
  - Hypotension [None]
  - Hyperhidrosis [None]
  - Drug hypersensitivity [None]

NARRATIVE: CASE EVENT DATE: 20221007
